FAERS Safety Report 24371511 (Version 1)
Quarter: 2024Q3

REPORT INFORMATION
  Report Type: Spontaneous
  Country: TH (occurrence: TH)
  Receive Date: 20240927
  Receipt Date: 20240927
  Transmission Date: 20241017
  Serious: Yes (Other)
  Sender: NOVARTIS
  Company Number: TH-002147023-NVSC2024TH191661

PATIENT
  Age: 44 Year
  Sex: Female

DRUGS (6)
  1. RIBOCICLIB [Suspect]
     Active Substance: RIBOCICLIB
     Indication: Breast cancer
     Dosage: 600 MG, QD
     Route: 065
     Dates: start: 202406
  2. RIBOCICLIB [Suspect]
     Active Substance: RIBOCICLIB
     Indication: Metastases to bone marrow
     Dosage: 400 MG, QD
     Route: 065
  3. RIBOCICLIB [Suspect]
     Active Substance: RIBOCICLIB
     Indication: Metastases to bone
     Dosage: 200 MG, QD
     Route: 065
  4. LETROZOLE [Suspect]
     Active Substance: LETROZOLE
     Indication: Breast cancer
     Dosage: UNK
     Route: 065
     Dates: start: 202406
  5. LETROZOLE [Suspect]
     Active Substance: LETROZOLE
     Indication: Metastases to bone marrow
  6. LETROZOLE [Suspect]
     Active Substance: LETROZOLE
     Indication: Metastases to bone

REACTIONS (3)
  - Neutropenia [Unknown]
  - Electrocardiogram QT prolonged [Unknown]
  - Arrhythmia [Unknown]
